FAERS Safety Report 21810028 (Version 1)
Quarter: 2023Q1

REPORT INFORMATION
  Report Type: Report from Study
  Country: US (occurrence: US)
  Receive Date: 20230103
  Receipt Date: 20230103
  Transmission Date: 20230418
  Serious: No
  Sender: FDA-Public Use
  Company Number: US-ABBVIE-4211284

PATIENT
  Age: 68 Year
  Sex: Female

DRUGS (1)
  1. SKYRIZI [Suspect]
     Active Substance: RISANKIZUMAB-RZAA
     Indication: Psoriatic arthropathy
     Dosage: WEEK 0, WEEK 4, EVERY 12 WEEKS THEREAFTER
     Route: 058
     Dates: start: 202211

REACTIONS (2)
  - Arthritis [Recovering/Resolving]
  - Psoriasis [Unknown]

NARRATIVE: CASE EVENT DATE: 20221101
